FAERS Safety Report 4422379-7 (Version None)
Quarter: 2004Q3

REPORT INFORMATION
  Report Type: 
  Country: None (occurrence: None)
  Receive Date: 20040804
  Receipt Date: 20040713
  Transmission Date: 20050211
  Serious: Yes (Hospitalization, Other)
  Sender: FDA-Public Use
  Company Number: USA040772420

PATIENT
  Age: 71 Year
  Sex: Male
  Weight: 76 kg

DRUGS (2)
  1. HUMALOG [Suspect]
     Dosage: 30 U DAY
  2. HUMULIN 30% REGULAR, 70% N [Suspect]
     Dates: start: 19890101

REACTIONS (2)
  - AORTIC VALVE REPLACEMENT [None]
  - PHARMACEUTICAL PRODUCT COMPLAINT [None]
